FAERS Safety Report 7489301-0 (Version None)
Quarter: 2011Q2

REPORT INFORMATION
  Report Type: 
  Country: None (occurrence: None)
  Receive Date: 20110518
  Receipt Date: 20110511
  Transmission Date: 20111010
  Serious: Yes (Hospitalization, Disabling)
  Sender: FDA-Public Use
  Company Number: US-SANOFI-AVENTIS-2011SA029941

PATIENT
  Age: 45 Year
  Sex: Female

DRUGS (1)
  1. LOVENOX [Suspect]
     Indication: ARTHROSCOPY
     Route: 065
     Dates: start: 20100101

REACTIONS (6)
  - SYNCOPE [None]
  - CONTUSION [None]
  - HYPOAESTHESIA [None]
  - PERIPHERAL NERVE PALSY [None]
  - HAEMATOMA [None]
  - HAEMARTHROSIS [None]
